FAERS Safety Report 7912240-5 (Version None)
Quarter: 2011Q4

REPORT INFORMATION
  Report Type: 
  Country: None (occurrence: None)
  Receive Date: 20111114
  Receipt Date: 20111104
  Transmission Date: 20120403
  Serious: Yes (Hospitalization)
  Sender: FDA-Public Use
  Company Number: JP-MERCK-1111USA00687

PATIENT
  Age: 70 Year
  Sex: Male

DRUGS (8)
  1. SINEMET [Suspect]
     Dosage: DIVIDED DOSE FREQUENCY UNKNOWN
     Route: 048
  2. DIOVAN [Concomitant]
     Route: 048
  3. CABERGOLINE [Concomitant]
     Route: 048
  4. LAC-B [Concomitant]
     Route: 048
  5. MUCOSTA [Concomitant]
     Route: 048
  6. LASIX [Concomitant]
     Route: 065
  7. GRAMALIL [Concomitant]
     Route: 048
  8. MAGMITT [Concomitant]
     Route: 048

REACTIONS (2)
  - TONGUE DISCOLOURATION [None]
  - FRACTURE [None]
